FAERS Safety Report 24236662 (Version 1)
Quarter: 2024Q3

REPORT INFORMATION
  Report Type: Other
  Country: CA (occurrence: CA)
  Receive Date: 20240822
  Receipt Date: 20240822
  Transmission Date: 20241017
  Serious: Yes (Death, Hospitalization, Other)
  Sender: BIOCON
  Company Number: CA-BIOCON BIOLOGICS LIMITED-BBL2024005987

PATIENT

DRUGS (1)
  1. OGIVRI [Suspect]
     Active Substance: TRASTUZUMAB-DKST
     Indication: Oesophageal adenocarcinoma
     Dosage: 324 MILLIGRAM, Q2W
     Route: 042

REACTIONS (2)
  - Metastases to central nervous system [Fatal]
  - Sepsis [Fatal]
